FAERS Safety Report 8349501-4 (Version None)
Quarter: 2012Q2

REPORT INFORMATION
  Report Type: 
  Country: None (occurrence: None)
  Receive Date: 20120510
  Receipt Date: 20101014
  Transmission Date: 20120825
  Serious: No
  Sender: FDA-Public Use
  Company Number: US-TEVA-2010005434

PATIENT
  Sex: Female
  Weight: 81.72 kg

DRUGS (5)
  1. SEREVENT [Concomitant]
     Indication: ASTHMA
  2. XYREM [Concomitant]
     Indication: NARCOLEPSY
  3. NEXIUM [Concomitant]
     Indication: GASTROOESOPHAGEAL REFLUX DISEASE
  4. NUVIGIL [Suspect]
     Indication: NARCOLEPSY
     Route: 048
     Dates: start: 20100101
  5. COZAAR [Concomitant]

REACTIONS (1)
  - FATIGUE [None]
